FAERS Safety Report 7661116-X (Version None)
Quarter: 2011Q3

REPORT INFORMATION
  Report Type: 
  Country: None (occurrence: None)
  Receive Date: 20110805
  Receipt Date: 20100923
  Transmission Date: 20111222
  Serious: No
  Sender: FDA-Public Use
  Company Number: US-ABBOTT-10P-163-0672850-00

PATIENT
  Sex: Male
  Weight: 105.33 kg

DRUGS (4)
  1. NIASPAN [Suspect]
     Indication: HIGH DENSITY LIPOPROTEIN DECREASED
     Dates: start: 20050101
  2. SIMCOR [Suspect]
     Indication: HIGH DENSITY LIPOPROTEIN DECREASED
     Dosage: 1000/20MG, 2 DAILY AT BEDTIME
     Route: 048
     Dates: start: 20090301
  3. NIASPAN [Suspect]
     Dosage: 2 AT BEDTIME
     Route: 048
     Dates: end: 20090301
  4. PRAVACHOL [Concomitant]
     Indication: PRODUCT USED FOR UNKNOWN INDICATION
     Route: 048

REACTIONS (6)
  - FLUSHING [None]
  - MYALGIA [None]
  - FATIGUE [None]
  - PRURITUS GENERALISED [None]
  - MUSCULOSKELETAL PAIN [None]
  - FEELING HOT [None]
